FAERS Safety Report 24706201 (Version 1)
Quarter: 2024Q4

REPORT INFORMATION
  Report Type: Spontaneous
  Country: US (occurrence: None)
  Receive Date: 20241206
  Receipt Date: 20241206
  Transmission Date: 20250114
  Serious: Yes (Hospitalization)
  Sender: Public
  Company Number: None

PATIENT
  Sex: Male

DRUGS (7)
  1. CAPECITABINE [Suspect]
     Active Substance: CAPECITABINE
     Indication: Oesophageal carcinoma
     Dosage: FREQUENCY : TWICE A DAY;?
     Route: 048
     Dates: start: 20240509
  2. ADVAIR DISKU AER 100/50 [Concomitant]
  3. CAPECITABINE [Concomitant]
     Active Substance: CAPECITABINE
  4. HERCEPTIN [Concomitant]
     Active Substance: TRASTUZUMAB
  5. KEYTRUDA INJ 1 OOMG/4M [Concomitant]
  6. OXALIPLATIN INJ 50/10ML [Concomitant]
  7. TRIAMCINOLONE ACETONIDE [Concomitant]
     Active Substance: TRIAMCINOLONE ACETONIDE

REACTIONS (4)
  - Product dose omission issue [None]
  - General physical health deterioration [None]
  - Lung disorder [None]
  - Liver disorder [None]
